FAERS Safety Report 5811117-9 (Version None)
Quarter: 2008Q3

REPORT INFORMATION
  Report Type: 
  Country: None (occurrence: None)
  Receive Date: 20080716
  Receipt Date: 20080704
  Transmission Date: 20090109
  Serious: Yes (Other)
  Sender: FDA-Public Use
  Company Number: PHHY2008JP12884

PATIENT
  Age: 11 Year
  Sex: Male

DRUGS (2)
  1. CYCLOSPORINE [Suspect]
     Indication: NEPHROTIC SYNDROME
  2. STEROIDS NOS [Suspect]

REACTIONS (12)
  - BACTERIAL INFECTION [None]
  - BLOOD FIBRINOGEN INCREASED [None]
  - CARDIAC MURMUR [None]
  - HYPERCOAGULATION [None]
  - HYPERLIPIDAEMIA [None]
  - HYPOPROTEINAEMIA [None]
  - INTRACARDIAC MASS [None]
  - INTRACARDIAC THROMBUS [None]
  - NEPHROTIC SYNDROME [None]
  - OEDEMA [None]
  - PNEUMONIA FUNGAL [None]
  - THORACOTOMY [None]
